FAERS Safety Report 7609997-X (Version None)
Quarter: 2011Q3

REPORT INFORMATION
  Report Type: 
  Country: None (occurrence: None)
  Receive Date: 20110714
  Receipt Date: 20110714
  Transmission Date: 20111222
  Serious: Yes (Other)
  Sender: FDA-Public Use
  Company Number: DE-ABBOTT-11P-062-0695323-00

PATIENT
  Sex: Male
  Weight: 55 kg

DRUGS (1)
  1. HUMIRA [Suspect]
     Indication: CROHN'S DISEASE
     Route: 058
     Dates: start: 20101115

REACTIONS (3)
  - PERIRECTAL ABSCESS [None]
  - ABSCESS INTESTINAL [None]
  - FISTULA [None]
